FAERS Safety Report 9159212 (Version 1)
Quarter: 2013Q1

REPORT INFORMATION
  Report Type: Spontaneous
  Country: FR (occurrence: None)
  Receive Date: 20130213
  Receipt Date: 20130213
  Transmission Date: 20140127
  Serious: Yes (Other)
  Sender: FDA-Public Use
  Company Number: 220362

PATIENT
  Sex: Female
  Weight: 83 kg

DRUGS (1)
  1. INNOHEP [Suspect]
     Indication: SURGERY
     Route: 058
     Dates: start: 20121204

REACTIONS (1)
  - Deep vein thrombosis [None]
